FAERS Safety Report 9320354 (Version 2)
Quarter: 2013Q2

REPORT INFORMATION
  Report Type: Spontaneous
  Country: FR (occurrence: FR)
  Receive Date: 20130530
  Receipt Date: 20130614
  Transmission Date: 20140414
  Serious: Yes (Life-Threatening, Hospitalization, Disabling, Other)
  Sender: FDA-Public Use
  Company Number: FR-RB-054338-13

PATIENT
  Age: 43 Year
  Sex: Female

DRUGS (2)
  1. SUBUTEX [Suspect]
     Indication: DRUG WITHDRAWAL MAINTENANCE THERAPY
     Dosage: IN THE MORNING AND IN THE EVENING
     Route: 042
     Dates: end: 20130524
  2. SPIRONOLACTONE [Concomitant]
     Indication: PRODUCT USED FOR UNKNOWN INDICATION
     Route: 065

REACTIONS (3)
  - Off label use [Recovered/Resolved]
  - Inappropriate schedule of drug administration [Recovered/Resolved]
  - Endocarditis [Not Recovered/Not Resolved]
